FAERS Safety Report 7454956-3 (Version None)
Quarter: 2011Q2

REPORT INFORMATION
  Report Type: 
  Country: None (occurrence: None)
  Receive Date: 20110503
  Receipt Date: 20110423
  Transmission Date: 20111010
  Serious: Yes (Other)
  Sender: FDA-Public Use
  Company Number: US-BRISTOL-MYERS SQUIBB COMPANY-15682768

PATIENT
  Age: 60 Year
  Sex: Male
  Weight: 58 kg

DRUGS (9)
  1. TENOFOVIR DISOPROXIL FUMARATE [Interacting]
     Indication: HIV INFECTION
  2. RITONAVIR [Interacting]
     Indication: HIV INFECTION
     Dates: start: 20000201
  3. COMBIVIR [Interacting]
     Indication: HIV INFECTION
  4. PAMIDRONIC ACID [Suspect]
     Indication: OSTEOPOROSIS
     Dates: start: 20060201
  5. ATAZANAVIR [Interacting]
     Indication: HIV INFECTION
     Dates: start: 20000201
  6. SALMETEROL + FLUTICASONE [Interacting]
     Indication: BRONCHIECTASIS
     Dosage: 1 DF= 50/250MG 2 PUFFS
     Route: 055
     Dates: start: 20030201
  7. HYDROCORTISONE [Suspect]
     Indication: ADRENAL INSUFFICIENCY
     Dosage: 1 DF = 20 MG IN MORNING AND 10 MG IN EVENING
  8. FLUTICASONE PROPIONATE [Interacting]
     Dosage: 1 DF=50 MCG 2 PUFFS,EACH NOSTRIL DAILY
     Route: 045
     Dates: start: 20030201
  9. ALBUTEROL [Interacting]
     Route: 045

REACTIONS (6)
  - OSTEOPOROSIS [None]
  - SPINAL COMPRESSION FRACTURE [None]
  - FEMUR FRACTURE [None]
  - DRUG INTERACTION [None]
  - OSTEONECROSIS [None]
  - SECONDARY ADRENOCORTICAL INSUFFICIENCY [None]
